FAERS Safety Report 9973728 (Version 1)
Quarter: 2014Q1

REPORT INFORMATION
  Report Type: Spontaneous
  Country: FR (occurrence: FR)
  Receive Date: 20140306
  Receipt Date: 20140306
  Transmission Date: 20141002
  Serious: Yes (Hospitalization)
  Sender: FDA-Public Use
  Company Number: FR-SA-2014SA023390

PATIENT
  Age: 88 Year
  Sex: Male

DRUGS (11)
  1. LASILIX FAIBLE [Suspect]
     Indication: PRODUCT USED FOR UNKNOWN INDICATION
     Route: 048
     Dates: end: 20131018
  2. BISOCE [Suspect]
     Indication: PRODUCT USED FOR UNKNOWN INDICATION
     Dosage: STRENGTH: 1.25 MG TABFIL
     Route: 048
     Dates: end: 20131018
  3. NORSET [Suspect]
     Indication: PRODUCT USED FOR UNKNOWN INDICATION
     Dosage: STRENGT: 15 MG TABFIL
     Route: 048
  4. TAHOR [Concomitant]
     Route: 048
  5. SERESTA [Concomitant]
     Dosage: SCORED TABLET, STRENGTH: 50 MG
     Route: 048
  6. SERESTA [Concomitant]
     Dosage: STRENGTH: 10 MG
     Route: 048
  7. SPECIAFOLDINE [Concomitant]
     Route: 048
  8. MOTILIUM [Concomitant]
     Dosage: 1 DF DAILY AS NECESSARY
     Route: 048
  9. DAFALGAN [Concomitant]
     Route: 048
  10. LANSOYL [Concomitant]
     Route: 048
  11. TRANSIPEG [Concomitant]
     Dosage: SACHET POWDER FOR ORAL SOLUTION?DAILY AS NEEDED
     Route: 048

REACTIONS (2)
  - Hypotension [Recovered/Resolved]
  - Malaise [Recovered/Resolved]
